FAERS Safety Report 9985636 (Version 1)
Quarter: 2014Q1

REPORT INFORMATION
  Report Type: Spontaneous
  Country: BR (occurrence: BR)
  Receive Date: 20140307
  Receipt Date: 20140307
  Transmission Date: 20141002
  Serious: Yes (Disabling, Other)
  Sender: FDA-Public Use
  Company Number: BR-ASTRAZENECA-2014SE14620

PATIENT
  Age: 83 Year
  Sex: Female
  Weight: 63 kg

DRUGS (7)
  1. ATENOLOL [Suspect]
     Route: 048
  2. CORUS H [Suspect]
     Route: 065
  3. UNKNOWN [Concomitant]
     Indication: BLOOD PRESSURE ABNORMAL
  4. SIMVASTATIN [Concomitant]
     Indication: BLOOD CHOLESTEROL ABNORMAL
  5. ENBREL PFS [Concomitant]
     Indication: RHEUMATOID ARTHRITIS
     Route: 058
     Dates: start: 201401
  6. UNKNOWN 1 [Concomitant]
     Indication: RHEUMATOID ARTHRITIS
     Route: 042
  7. UNKNOWN 2 [Concomitant]
     Indication: PAIN

REACTIONS (14)
  - Yellow skin [Unknown]
  - Pain [Not Recovered/Not Resolved]
  - Activities of daily living impaired [Unknown]
  - Rheumatoid arthritis [Unknown]
  - Weight decreased [Not Recovered/Not Resolved]
  - Joint swelling [Not Recovered/Not Resolved]
  - Limb discomfort [Not Recovered/Not Resolved]
  - Dry throat [Unknown]
  - Increased upper airway secretion [Unknown]
  - Neck pain [Not Recovered/Not Resolved]
  - Arthralgia [Not Recovered/Not Resolved]
  - Red blood cell sedimentation rate abnormal [Unknown]
  - Hallucination, visual [Unknown]
  - Dry mouth [Unknown]
